FAERS Safety Report 5542713-4 (Version None)
Quarter: 2007Q4

REPORT INFORMATION
  Report Type: 
  Country: None (occurrence: None)
  Receive Date: 20071210
  Receipt Date: 20071130
  Transmission Date: 20080405
  Serious: Yes (Other)
  Sender: FDA-Public Use
  Company Number: US-PFIZER INC-2007036764

PATIENT
  Sex: Male
  Weight: 104.3 kg

DRUGS (5)
  1. VIAGRA [Suspect]
     Indication: ERECTILE DYSFUNCTION
     Route: 048
  2. TOPROL-XL [Concomitant]
  3. PRAVACHOL [Concomitant]
  4. GLUCOTROL [Concomitant]
  5. AMARYL [Concomitant]

REACTIONS (3)
  - ANXIETY [None]
  - BLINDNESS [None]
  - OPTIC ISCHAEMIC NEUROPATHY [None]
